FAERS Safety Report 13819520 (Version 1)
Quarter: 2017Q3

REPORT INFORMATION
  Report Type: Report from Study
  Country: US (occurrence: US)
  Receive Date: 20170731
  Receipt Date: 20170731
  Transmission Date: 20171127
  Serious: No
  Sender: FDA-Public Use
  Company Number: US-EXELIXIS-CABO-16007867

PATIENT
  Sex: Male

DRUGS (34)
  1. ACETAMINOPHEN. [Concomitant]
     Active Substance: ACETAMINOPHEN
  2. EPIPEN [Concomitant]
     Active Substance: EPINEPHRINE
  3. LISINOPRIL. [Concomitant]
     Active Substance: LISINOPRIL
  4. CRESTOR [Concomitant]
     Active Substance: ROSUVASTATIN CALCIUM
  5. INVOKANA [Concomitant]
     Active Substance: CANAGLIFLOZIN
  6. GLIMEPIRIDE. [Concomitant]
     Active Substance: GLIMEPIRIDE
  7. HYDROMORPHONE [Concomitant]
     Active Substance: HYDROMORPHONE
  8. ATIVAN [Concomitant]
     Active Substance: LORAZEPAM
  9. PREVIDENT [Concomitant]
     Active Substance: SODIUM FLUORIDE
  10. VITAMIN D2 [Concomitant]
     Active Substance: ERGOCALCIFEROL
  11. HEPARIN SODIUM PORCINE [Concomitant]
     Active Substance: HEPARIN SODIUM
  12. NEOSPORIN [Concomitant]
     Active Substance: BACITRACIN ZINC\NEOMYCIN SULFATE\POLYMYXIN B SULFATE
  13. TIZANIDINE. [Concomitant]
     Active Substance: TIZANIDINE
  14. CABOMETYX [Suspect]
     Active Substance: CABOZANTINIB S-MALATE
     Dosage: 60 MG, 4 DAYS ON AND 3 DAYS OFF
     Route: 048
  15. SYMBICORT [Concomitant]
     Active Substance: BUDESONIDE\FORMOTEROL FUMARATE DIHYDRATE
  16. IMDUR [Concomitant]
     Active Substance: ISOSORBIDE MONONITRATE
  17. LOPRESSOR [Concomitant]
     Active Substance: METOPROLOL TARTRATE
  18. NOVOLOG [Concomitant]
     Active Substance: INSULIN ASPART
  19. VASCEPA [Concomitant]
     Active Substance: ICOSAPENT ETHYL
  20. TYLENOL [Concomitant]
     Active Substance: ACETAMINOPHEN
  21. LEVOTHYROXIN [Concomitant]
     Active Substance: LEVOTHYROXINE
  22. LINZESS [Concomitant]
     Active Substance: LINACLOTIDE
  23. CLOPIDOGREL BISULFATE. [Concomitant]
     Active Substance: CLOPIDOGREL BISULFATE
  24. XGEVA [Concomitant]
     Active Substance: DENOSUMAB
  25. TOUJEO [Concomitant]
     Active Substance: INSULIN GLARGINE
  26. LYRICA [Concomitant]
     Active Substance: PREGABALIN
  27. ZOFRAN [Concomitant]
     Active Substance: ONDANSETRON HYDROCHLORIDE
  28. CABOMETYX [Suspect]
     Active Substance: CABOZANTINIB S-MALATE
     Indication: RENAL CANCER
     Dosage: 60 MG, QD
     Route: 048
     Dates: start: 20160817
  29. BYDUREON [Concomitant]
     Active Substance: EXENATIDE
  30. HYDRALAZINE [Concomitant]
     Active Substance: HYDRALAZINE HYDROCHLORIDE
  31. PERIDEX [Concomitant]
     Active Substance: CHLORHEXIDINE GLUCONATE
  32. FLUTICASONE PROPIONATE. [Concomitant]
     Active Substance: FLUTICASONE PROPIONATE
  33. PIOGLITAZONE. [Concomitant]
     Active Substance: PIOGLITAZONE
  34. XOPENEX [Concomitant]
     Active Substance: LEVALBUTEROL HYDROCHLORIDE

REACTIONS (2)
  - Diarrhoea [Not Recovered/Not Resolved]
  - Hand-foot-and-mouth disease [Not Recovered/Not Resolved]
